FAERS Safety Report 9158337 (Version 1)
Quarter: 2013Q1

REPORT INFORMATION
  Report Type: Spontaneous
  Country: JP (occurrence: JP)
  Receive Date: 20130312
  Receipt Date: 20130312
  Transmission Date: 20140127
  Serious: Yes (Death, Other)
  Sender: FDA-Public Use
  Company Number: JP-ROCHE-1174559

PATIENT
  Age: 56 Year
  Sex: Female

DRUGS (2)
  1. VESANOID [Suspect]
     Indication: ACUTE PROMYELOCYTIC LEUKAEMIA
     Dosage: DOSAGE UNCERTAIN
     Route: 048
     Dates: start: 2012
  2. VESANOID [Suspect]
     Indication: ACUTE PROMYELOCYTIC LEUKAEMIA
     Dosage: DOSAGE IS UNCERTAIN.
     Route: 048
     Dates: start: 2012

REACTIONS (3)
  - Death [Fatal]
  - Retinoic acid syndrome [Unknown]
  - Pyrexia [Unknown]
